FAERS Safety Report 5200792-8 (Version None)
Quarter: 2006Q4

REPORT INFORMATION
  Report Type: 
  Country: None (occurrence: None)
  Receive Date: 20061016
  Receipt Date: 20060905
  Transmission Date: 20070319
  Serious: No
  Sender: FDA-Public Use
  Company Number: 2006SP003193

PATIENT
  Age: 73 Year
  Sex: Female
  Weight: 57.6068 kg

DRUGS (9)
  1. LUNESTA [Suspect]
     Indication: INSOMNIA
     Dosage: SEE IMAGE
     Route: 048
     Dates: start: 20060101, end: 20060101
  2. LUNESTA [Suspect]
     Indication: INSOMNIA
     Dosage: SEE IMAGE
     Route: 048
     Dates: start: 20060801, end: 20060101
  3. LUNESTA [Suspect]
     Indication: INSOMNIA
     Dosage: SEE IMAGE
     Route: 048
     Dates: start: 20060701, end: 20060801
  4. LUNESTA [Suspect]
     Indication: INSOMNIA
     Dosage: SEE IMAGE
     Route: 048
     Dates: start: 20060101, end: 20060910
  5. PERCOCET [Concomitant]
  6. NEURONTIN [Concomitant]
  7. AVAPRO [Concomitant]
  8. LYRICA [Concomitant]
  9. ASPIRIN [Concomitant]

REACTIONS (2)
  - FATIGUE [None]
  - PHARYNGOLARYNGEAL PAIN [None]
